FAERS Safety Report 17038135 (Version 2)
Quarter: 2019Q4

REPORT INFORMATION
  Report Type: Spontaneous
  Country: US (occurrence: US)
  Receive Date: 20191115
  Receipt Date: 20191213
  Transmission Date: 20200122
  Serious: No
  Sender: FDA-Public Use
  Company Number: US-BAUSCH-BL-2019-058976

PATIENT
  Sex: Female
  Weight: 68.55 kg

DRUGS (7)
  1. SOOTHE XP [Suspect]
     Active Substance: LIGHT MINERAL OIL\MINERAL OIL
     Indication: DRY EYE
     Dosage: FOUR TO FIVE YEARS AGO, THREE TO FOUR TIMES DAILY
     Route: 047
     Dates: end: 2019
  2. SOOTHE XP [Suspect]
     Active Substance: LIGHT MINERAL OIL\MINERAL OIL
     Dosage: BEGAN USING AGAIN
     Route: 047
     Dates: start: 2019, end: 201910
  3. LETROZOLE. [Concomitant]
     Active Substance: LETROZOLE
     Indication: NEOPLASM MALIGNANT
     Route: 048
     Dates: start: 2008
  4. LATANOPROST OPHTHALMIC SOLUTION 0.005% [Suspect]
     Active Substance: LATANOPROST
     Indication: GLAUCOMA
     Dosage: STARTED FIVE TO SIX YEARS AGO, NIGHTLY AT BEDTIME
     Route: 047
  5. THERATEARS [Concomitant]
     Active Substance: CARBOXYMETHYLCELLULOSE SODIUM
     Indication: PRODUCT USED FOR UNKNOWN INDICATION
     Dosage: DISCONTINUED AFTER IRRITATION RESOLVED
     Dates: end: 2019
  6. SMZ-TMP DS [Concomitant]
     Active Substance: SULFAMETHOXAZOLE\TRIMETHOPRIM
     Indication: PRODUCT USED FOR UNKNOWN INDICATION
     Dosage: STRENGTH: 800/160MG TABLET; HAS BEEN USING FOR 10 YEARS
     Route: 048
  7. THERATEARS [Concomitant]
     Active Substance: CARBOXYMETHYLCELLULOSE SODIUM
     Dosage: RESTARTED TAKING RECENTLY AFTER EYE IRRITATION CAME BACK
     Dates: start: 2019

REACTIONS (2)
  - Eye irritation [Recovered/Resolved]
  - Product dose omission [Unknown]

NARRATIVE: CASE EVENT DATE: 2019
